FAERS Safety Report 7281326-3 (Version None)
Quarter: 2011Q1

REPORT INFORMATION
  Report Type: 
  Country: None (occurrence: None)
  Receive Date: 20110208
  Receipt Date: 20110203
  Transmission Date: 20110831
  Serious: Yes (Hospitalization, Disabling, Other)
  Sender: FDA-Public Use
  Company Number: US-PFIZER INC-2010123484

PATIENT
  Sex: Female

DRUGS (2)
  1. CHANTIX [Suspect]
     Indication: SMOKING CESSATION THERAPY
     Dosage: 0.5 MG AND 1 MG
     Route: 048
     Dates: start: 20071111, end: 20071113
  2. CLONAZEPAM [Concomitant]
     Indication: ANXIETY
     Dosage: UNK
     Dates: start: 20071001, end: 20080701

REACTIONS (10)
  - SUICIDE ATTEMPT [None]
  - ABNORMAL BEHAVIOUR [None]
  - INTENTIONAL OVERDOSE [None]
  - DEPRESSION [None]
  - FEAR [None]
  - AGITATION [None]
  - MENTAL DISORDER [None]
  - SPEECH DISORDER [None]
  - DELIRIUM [None]
  - MOOD SWINGS [None]
